FAERS Safety Report 5177499-9 (Version None)
Quarter: 2006Q4

REPORT INFORMATION
  Report Type: 
  Country: None (occurrence: None)
  Receive Date: 20061218
  Receipt Date: 20061128
  Transmission Date: 20070319
  Serious: Yes (Hospitalization)
  Sender: FDA-Public Use
  Company Number: US-ELI_LILLY_AND_COMPANY-US200611005420

PATIENT
  Age: 79 Year
  Sex: Female

DRUGS (1)
  1. FORTEO [Suspect]
     Indication: OSTEOPOROSIS

REACTIONS (6)
  - ARTHRITIS [None]
  - BRADYCARDIA [None]
  - DYSPNOEA [None]
  - FOOD POISONING [None]
  - PHARMACEUTICAL PRODUCT COMPLAINT [None]
  - PULMONARY HYPERTENSION [None]
